FAERS Safety Report 8862105 (Version 1)
Quarter: 2012Q4

REPORT INFORMATION
  Report Type: 
  Country: US (occurrence: US)
  Receive Date: 20121026
  Receipt Date: 20121026
  Transmission Date: 20130627
  Serious: Yes (Death, Life-Threatening, Other)
  Sender: FDA-Public Use
  Company Number: US-ROXANE LABORATORIES, INC.-2012-RO-02100RO

PATIENT
  Age: 15 Month
  Sex: Male

DRUGS (1)
  1. METHADONE [Suspect]
     Route: 048

REACTIONS (4)
  - Homicide [Fatal]
  - Off label use [Unknown]
  - Apnoea [Unknown]
  - Unresponsive to stimuli [Unknown]
